FAERS Safety Report 16498077 (Version 2)
Quarter: 2019Q4

REPORT INFORMATION
  Report Type: Report from Study
  Country: DE (occurrence: DE)
  Receive Date: 20190628
  Receipt Date: 20191202
  Transmission Date: 20200122
  Serious: Yes (Hospitalization, Other)
  Sender: FDA-Public Use
  Company Number: PHHO2019DE006545

PATIENT
  Age: 78 Year
  Sex: Female
  Weight: 53 kg

DRUGS (9)
  1. NILOTINIB [Suspect]
     Active Substance: NILOTINIB
     Dosage: 150 MG, UNK
     Route: 048
     Dates: start: 20190210, end: 20190210
  2. NEBIVOLOL. [Concomitant]
     Active Substance: NEBIVOLOL
     Indication: HYPERTONIA
     Dosage: 5 MG, QD
     Route: 048
  3. CORVATON [Concomitant]
     Active Substance: MOLSIDOMINE
     Indication: HYPERTONIA
     Dosage: 6 MG, BID
     Route: 048
  4. NILOTINIB [Suspect]
     Active Substance: NILOTINIB
     Indication: CHRONIC MYELOID LEUKAEMIA
     Dosage: 300 MG, BID
     Route: 048
     Dates: start: 20190104, end: 20190117
  5. NILOTINIB [Suspect]
     Active Substance: NILOTINIB
     Dosage: 150 MG QD + 300 MG QD
     Route: 048
     Dates: start: 20190129, end: 20190209
  6. AMLODIPIN [Concomitant]
     Active Substance: AMLODIPINE BESYLATE
     Indication: HYPERTONIA
     Dosage: 5 MG, QD
     Route: 048
  7. NILOTINIB [Suspect]
     Active Substance: NILOTINIB
     Dosage: 150 MG, BID
     Route: 048
     Dates: start: 20190118, end: 20190128
  8. RAMILICH [Concomitant]
     Active Substance: RAMIPRIL
     Indication: HYPERTONIA
     Dosage: 5 MG 1.5 X PD
     Route: 048
  9. ASPIRIN. [Concomitant]
     Active Substance: ASPIRIN
     Indication: HYPERTONIA
     Dosage: 100 MG, QD
     Route: 048

REACTIONS (2)
  - Myocardial infarction [Recovered/Resolved]
  - Lung disorder [Recovered/Resolved]

NARRATIVE: CASE EVENT DATE: 20190209
